FAERS Safety Report 6454440-X (Version None)
Quarter: 2009Q4

REPORT INFORMATION
  Report Type: 
  Country: None (occurrence: None)
  Receive Date: 20091124
  Receipt Date: 20091120
  Transmission Date: 20100525
  Serious: Yes (Death, Hospitalization, Other)
  Sender: FDA-Public Use
  Company Number: PHHO2009FR12708

PATIENT
  Weight: 70 kg

DRUGS (2)
  1. RAD 666 RAD+TAB [Suspect]
     Indication: RENAL CELL CARCINOMA
     Dosage: 70 MG
     Route: 048
     Dates: start: 20090403, end: 20090727
  2. ARANESP [Concomitant]
     Indication: ANAEMIA
     Dosage: 15 ML
     Dates: start: 20090515, end: 20090718

REACTIONS (11)
  - CARDIAC MURMUR [None]
  - COUGH [None]
  - DYSPNOEA [None]
  - INTERSTITIAL LUNG DISEASE [None]
  - MECHANICAL VENTILATION [None]
  - METASTASES TO LUNG [None]
  - MULTI-ORGAN FAILURE [None]
  - PNEUMOCYSTIS JIROVECI PNEUMONIA [None]
  - RENAL FAILURE ACUTE [None]
  - RESPIRATORY FAILURE [None]
  - TACHYPNOEA [None]
